FAERS Safety Report 12342184 (Version 1)
Quarter: 2016Q2

REPORT INFORMATION
  Report Type: Spontaneous
  Country: US (occurrence: US)
  Receive Date: 20160506
  Receipt Date: 20160506
  Transmission Date: 20160815
  Serious: No
  Sender: FDA-Public Use
  Company Number: US-ANACOR-2016ANA00105

PATIENT
  Sex: Male

DRUGS (1)
  1. KERYDIN [Suspect]
     Active Substance: TAVABOROLE

REACTIONS (3)
  - Application site inflammation [Unknown]
  - Application site erythema [Unknown]
  - Application site dermatitis [Unknown]
